FAERS Safety Report 4431750-9 (Version None)
Quarter: 2004Q3

REPORT INFORMATION
  Report Type: 
  Country: None (occurrence: None)
  Receive Date: 20040823
  Receipt Date: 20040823
  Transmission Date: 20050211
  Serious: Yes (Other)
  Sender: FDA-Public Use
  Company Number: None

PATIENT
  Sex: Male

DRUGS (1)
  1. ISOSORBIDE 7777 (KREMERS) 30 MG [Suspect]
     Indication: ANGINA PECTORIS
     Dosage: 1/2 TABS -PO QD
     Route: 048
     Dates: start: 20040731

REACTIONS (3)
  - HEADACHE [None]
  - NECK PAIN [None]
  - PHARMACEUTICAL PRODUCT COMPLAINT [None]
